FAERS Safety Report 18120573 (Version 3)
Quarter: 2022Q4

REPORT INFORMATION
  Report Type: Spontaneous
  Country: ES (occurrence: ES)
  Receive Date: 20200806
  Receipt Date: 20221026
  Transmission Date: 20230112
  Serious: Yes (Congenital Anomaly, Other)
  Sender: FDA-Public Use
  Company Number: ES-NOVARTISPH-NVSC2020ES217184

PATIENT

DRUGS (3)
  1. LEVETIRACETAM [Suspect]
     Active Substance: LEVETIRACETAM
     Indication: Foetal exposure during pregnancy
     Dosage: MATERNAL EXPOSURE BEFORE PREGNANCY: 1000 MG
     Route: 064
  2. LEVETIRACETAM [Suspect]
     Active Substance: LEVETIRACETAM
     Dosage: MATERNAL EXPOSURE BEFORE PREGNANCY: UNK, QD
     Route: 064
  3. CARBAMAZEPINE [Suspect]
     Active Substance: CARBAMAZEPINE
     Indication: Foetal exposure during pregnancy
     Dosage: MATERNAL EXPOSURE BEFORE PREGNANCY:  400 MILLIGRAM
     Route: 064

REACTIONS (3)
  - Congenital anomaly [Unknown]
  - Anencephaly [Unknown]
  - Foetal exposure during pregnancy [Unknown]
